FAERS Safety Report 7556964-0 (Version None)
Quarter: 2011Q2

REPORT INFORMATION
  Report Type: 
  Country: None (occurrence: None)
  Receive Date: 20110620
  Receipt Date: 20110610
  Transmission Date: 20111010
  Serious: Yes (Other)
  Sender: FDA-Public Use
  Company Number: PHHO2011US10163

PATIENT
  Sex: Male

DRUGS (9)
  1. ZOLEDRONIC ACID [Suspect]
     Dosage: UNK
  2. BEVACIZUMAB [Suspect]
     Indication: PROSTATE CANCER METASTATIC
     Dosage: 15 MG/KG, UNK
     Route: 048
     Dates: start: 20091019
  3. DOCETAXEL [Concomitant]
     Indication: PROSTATE CANCER METASTATIC
     Dosage: 75 MG/M2, UNK
     Route: 042
     Dates: start: 20091019
  4. PREDNISONE [Suspect]
     Dosage: 5 MG, BID
     Route: 048
     Dates: start: 20110425
  5. REVLIMID [Suspect]
     Indication: PROSTATE CANCER METASTATIC
     Dosage: 25 MG, UNK
     Route: 048
     Dates: start: 20091019
  6. REVLIMID [Suspect]
     Dosage: 25 MG, UNK
     Route: 048
     Dates: start: 20110425
  7. BEVACIZUMAB [Suspect]
     Dosage: 15 MG/KG, UNK
     Route: 042
     Dates: start: 20110425
  8. PREDNISONE [Suspect]
     Indication: PROSTATE CANCER METASTATIC
     Dosage: 5 MG, BID
     Route: 048
     Dates: start: 20091019
  9. DOCETAXEL [Concomitant]
     Dosage: 75 MG/M2, UNK
     Route: 042
     Dates: start: 20110425

REACTIONS (1)
  - OSTEONECROSIS OF JAW [None]
